FAERS Safety Report 20916385 (Version 1)
Quarter: 2022Q2

REPORT INFORMATION
  Report Type: Spontaneous
  Country: NL (occurrence: NL)
  Receive Date: 20220604
  Receipt Date: 20220604
  Transmission Date: 20220720
  Serious: Yes (Other)
  Sender: FDA-Public Use
  Company Number: NL-AMGEN-NLDSP2022091735

PATIENT
  Age: 76 Year

DRUGS (1)
  1. ADALIMUMAB [Suspect]
     Active Substance: ADALIMUMAB
     Indication: Polyarthritis
     Route: 058

REACTIONS (3)
  - Arthritis [Recovering/Resolving]
  - Sjogren^s syndrome [Unknown]
  - Therapeutic response unexpected [Unknown]
